FAERS Safety Report 25644860 (Version 2)
Quarter: 2025Q3

REPORT INFORMATION
  Report Type: Spontaneous
  Country: US (occurrence: US)
  Receive Date: 20250805
  Receipt Date: 20250912
  Transmission Date: 20251020
  Serious: Yes (Hospitalization)
  Sender: SANOFI AVENTIS
  Company Number: US-SA-2025SA208077

PATIENT
  Age: 65 Year
  Sex: Male
  Weight: 77.27 kg

DRUGS (2)
  1. DUPIXENT [Suspect]
     Active Substance: DUPILUMAB
     Indication: Asthma
     Dosage: 300 MG, QOW
     Route: 058
  2. TACROLIMUS [Concomitant]
     Active Substance: TACROLIMUS

REACTIONS (4)
  - Surgery [Unknown]
  - Asthma [Unknown]
  - Rebound effect [Unknown]
  - Product dose omission issue [Unknown]

NARRATIVE: CASE EVENT DATE: 20250701
